FAERS Safety Report 5949410-1 (Version None)
Quarter: 2008Q4

REPORT INFORMATION
  Report Type: 
  Country: None (occurrence: None)
  Receive Date: 20081112
  Receipt Date: 20081031
  Transmission Date: 20090506
  Serious: Yes (Other)
  Sender: FDA-Public Use
  Company Number: PHEH2008US09832

PATIENT
  Age: 83 Year
  Sex: Male

DRUGS (2)
  1. GLEEVEC [Suspect]
     Indication: LEUKAEMIA
     Dosage: 400 MG, QD
     Route: 048
  2. CHEMOTHERAPEUTICS NOS [Concomitant]
     Route: 042

REACTIONS (2)
  - HEPATIC NEOPLASM MALIGNANT [None]
  - OESOPHAGEAL CARCINOMA [None]
